FAERS Safety Report 4420087-X (Version None)
Quarter: 2004Q3

REPORT INFORMATION
  Report Type: 
  Country: None (occurrence: None)
  Receive Date: 20040804
  Receipt Date: 20040713
  Transmission Date: 20050211
  Serious: Yes (Death)
  Sender: FDA-Public Use
  Company Number: GBS040715233

PATIENT
  Age: 23 Year
  Sex: Female

DRUGS (2)
  1. PROZAC [Suspect]
     Indication: DEPRESSION
  2. DOTHIEPIN HYDROCHLORIDE [Concomitant]

REACTIONS (1)
  - SUDDEN DEATH [None]
